FAERS Safety Report 7399838-0 (Version None)
Quarter: 2011Q2

REPORT INFORMATION
  Report Type: 
  Country: None (occurrence: None)
  Receive Date: 20110407
  Receipt Date: 20110405
  Transmission Date: 20111010
  Serious: Yes (Other)
  Sender: FDA-Public Use
  Company Number: TR-PFIZER INC-2011074778

PATIENT
  Age: 73 Year
  Sex: Female

DRUGS (2)
  1. LUSTRAL [Suspect]
     Dosage: 50 MG, 1X/DAY
     Route: 048
  2. OLMETEC [Suspect]

REACTIONS (1)
  - DEAFNESS [None]
